FAERS Safety Report 23127498 (Version 2)
Quarter: 2023Q4

REPORT INFORMATION
  Report Type: Report from Study
  Country: US (occurrence: US)
  Receive Date: 20231031
  Receipt Date: 20231128
  Transmission Date: 20240110
  Serious: No
  Sender: FDA-Public Use
  Company Number: US-drreddys-SPO/USA/23/0177008

PATIENT
  Age: 4 Year
  Sex: Female
  Weight: 23 kg

DRUGS (4)
  1. SAPROPTERIN DIHYDROCHLORIDE [Suspect]
     Active Substance: SAPROPTERIN DIHYDROCHLORIDE
     Indication: Phenylketonuria
     Dosage: DISSOLVE FOUR 100MG POWDER PACKETS IN 4 TO 8 OUNCES OF WATER OR APPLE JUICE AND TAKE DAILY AS DIRECT
     Route: 048
  2. ZYRTEC [Concomitant]
     Active Substance: CETIRIZINE HYDROCHLORIDE
     Indication: Product used for unknown indication
  3. MOXATAG [Concomitant]
     Active Substance: AMOXICILLIN
     Indication: Product used for unknown indication
  4. PERIFLEX JUNIOR [Concomitant]
     Indication: Product used for unknown indication

REACTIONS (3)
  - Ear infection [Unknown]
  - Seasonal allergy [Unknown]
  - Product colour issue [Unknown]
